FAERS Safety Report 7294093-4 (Version None)
Quarter: 2011Q1

REPORT INFORMATION
  Report Type: 
  Country: None (occurrence: None)
  Receive Date: 20110203
  Receipt Date: 20110121
  Transmission Date: 20110831
  Serious: Yes (Other)
  Sender: FDA-Public Use
  Company Number: 026319

PATIENT

DRUGS (1)
  1. VIMPAT [Suspect]

REACTIONS (1)
  - LEUKOPENIA [None]
